FAERS Safety Report 4382543-2 (Version None)
Quarter: 2004Q2

REPORT INFORMATION
  Report Type: 
  Country: None (occurrence: None)
  Receive Date: 20040609
  Receipt Date: 20040520
  Transmission Date: 20050107
  Serious: Yes (Hospitalization, Disabling)
  Sender: FDA-Public Use
  Company Number: 237132

PATIENT
  Age: 73 Year
  Sex: Male
  Weight: 70 kg

DRUGS (4)
  1. NOVOSEVEN [Suspect]
     Indication: ILL-DEFINED DISORDER
     Dates: start: 20000327, end: 20040401
  2. LISINOPRIL [Concomitant]
  3. ALLOPURINOL [Concomitant]
  4. OMEPRAZOLE [Concomitant]

REACTIONS (1)
  - THROMBOTIC STROKE [None]
